FAERS Safety Report 5840712-6 (Version None)
Quarter: 2008Q3

REPORT INFORMATION
  Report Type: 
  Country: None (occurrence: None)
  Receive Date: 20080811
  Receipt Date: 20080807
  Transmission Date: 20090109
  Serious: Yes (Death, Other)
  Sender: FDA-Public Use
  Company Number: PHHY2008GB17365

PATIENT
  Age: 60 Year
  Sex: Male

DRUGS (2)
  1. CLOZAPINE [Suspect]
     Dosage: UNK
     Route: 048
     Dates: start: 19980312, end: 20051023
  2. ZAPONEX [Suspect]
     Dosage: UNK
     Dates: start: 20051024

REACTIONS (2)
  - CHOKING [None]
  - MYOCARDIAL ISCHAEMIA [None]
